FAERS Safety Report 11590122 (Version 1)
Quarter: 2015Q4

REPORT INFORMATION
  Report Type: Spontaneous
  Country: IT (occurrence: IT)
  Receive Date: 20151002
  Receipt Date: 20151002
  Transmission Date: 20160304
  Serious: Yes (Other)
  Sender: FDA-Public Use
  Company Number: IT-PFIZER INC-2015325351

PATIENT
  Age: 43 Year
  Sex: Female

DRUGS (2)
  1. XANAX [Suspect]
     Active Substance: ALPRAZOLAM
     Dosage: 20 GTT, SINGLE (IN THE MORNING)
     Route: 048
     Dates: start: 20150715, end: 20150715
  2. XANAX [Suspect]
     Active Substance: ALPRAZOLAM
     Indication: DEPRESSION
     Dosage: 10 GTT, SINGLE  (IN THE EVENING)
     Route: 048
     Dates: start: 20150714, end: 20150714

REACTIONS (2)
  - Intentional self-injury [Unknown]
  - Confusional state [Unknown]

NARRATIVE: CASE EVENT DATE: 20150715
